FAERS Safety Report 24027976 (Version 1)
Quarter: 2024Q2

REPORT INFORMATION
  Report Type: Spontaneous
  Country: US (occurrence: US)
  Receive Date: 20240628
  Receipt Date: 20240628
  Transmission Date: 20240716
  Serious: Yes (Hospitalization)
  Sender: FDA-Public Use
  Company Number: US-JNJFOC-20240666054

PATIENT
  Sex: Female

DRUGS (2)
  1. ZYRTEC [Interacting]
     Active Substance: CETIRIZINE HYDROCHLORIDE
     Indication: Product used for unknown indication
     Route: 065
     Dates: start: 2024
  2. CAPLYTA [Interacting]
     Active Substance: LUMATEPERONE
     Indication: Bipolar disorder
     Route: 065
     Dates: start: 20230612, end: 2024

REACTIONS (2)
  - Pseudostroke [Not Recovered/Not Resolved]
  - Drug interaction [Unknown]

NARRATIVE: CASE EVENT DATE: 20240101
